FAERS Safety Report 7890827-6 (Version None)
Quarter: 2011Q4

REPORT INFORMATION
  Report Type: 
  Country: None (occurrence: None)
  Receive Date: 20111103
  Receipt Date: 20110726
  Transmission Date: 20120403
  Serious: No
  Sender: FDA-Public Use
  Company Number: US-AMGEN-USASP2011037918

PATIENT
  Age: 58 Year
  Sex: Female

DRUGS (11)
  1. PAXIL [Concomitant]
     Dosage: 40 MG, UNK
  2. PREVACID [Concomitant]
     Dosage: 30 MG, UNK
  3. AMBIEN [Concomitant]
     Dosage: 10 MG, UNK
  4. METHOTREXATE [Concomitant]
     Dosage: 2.5 MG, UNK
  5. ZOCOR [Concomitant]
     Dosage: 40 MG, UNK
  6. ENBREL [Suspect]
     Indication: PRODUCT USED FOR UNKNOWN INDICATION
     Dosage: 50 MG, QWK
  7. FOLIC ACID [Concomitant]
     Dosage: 1 MG, UNK
  8. PLAVIX [Concomitant]
     Dosage: 75 MG, UNK
  9. BUTALBITAL ACETAMINOPHEN AND CAFFEINE [Concomitant]
     Dosage: UNK
  10. PROPOXYPHENE HYDROCHLORIDE [Concomitant]
     Dosage: UNK
  11. ATENOLOL [Concomitant]
     Dosage: 50 MG, UNK

REACTIONS (1)
  - RASH PAPULAR [None]
